FAERS Safety Report 13668797 (Version 1)
Quarter: 2017Q2

REPORT INFORMATION
  Report Type: Spontaneous
  Country: AR (occurrence: AR)
  Receive Date: 20170620
  Receipt Date: 20170620
  Transmission Date: 20170830
  Serious: Yes (Other)
  Sender: FDA-Public Use
  Company Number: AR-PFIZER INC-2016567238

PATIENT
  Age: 75 Year
  Sex: Female

DRUGS (2)
  1. XELJANZ [Suspect]
     Active Substance: TOFACITINIB CITRATE
     Indication: RHEUMATOID ARTHRITIS
     Dosage: 5 MG, 1X/DAY
     Dates: start: 20150618, end: 201611
  2. XELJANZ [Suspect]
     Active Substance: TOFACITINIB CITRATE
     Dosage: UNK
     Dates: end: 2017

REACTIONS (6)
  - Diabetes mellitus [Unknown]
  - Malaise [Unknown]
  - Urinary tract infection [Not Recovered/Not Resolved]
  - Product use issue [Unknown]
  - Herpes virus infection [Unknown]
  - Fall [Unknown]

NARRATIVE: CASE EVENT DATE: 20150618
